FAERS Safety Report 9917701 (Version 1)
Quarter: 2014Q1

REPORT INFORMATION
  Report Type: Spontaneous
  Country: US (occurrence: US)
  Receive Date: 20140221
  Receipt Date: 20140221
  Transmission Date: 20141002
  Serious: Yes (Hospitalization)
  Sender: FDA-Public Use
  Company Number: US-BAXTER-2014BAX007765

PATIENT
  Sex: Male

DRUGS (2)
  1. DIANEAL PD2 [Suspect]
     Indication: RENAL FAILURE CHRONIC
     Route: 033
     Dates: start: 201307
  2. DIANEAL PD2 [Suspect]
     Route: 033
     Dates: start: 201307

REACTIONS (4)
  - Pneumonia [Not Recovered/Not Resolved]
  - Fluid overload [Unknown]
  - Peritoneal disorder [Unknown]
  - Peritoneal dialysis complication [Unknown]
